FAERS Safety Report 8586291-4 (Version None)
Quarter: 2012Q3

REPORT INFORMATION
  Report Type: 
  Country: None (occurrence: None)
  Receive Date: 20120810
  Receipt Date: 20120801
  Transmission Date: 20120928
  Serious: Yes (Hospitalization, Other)
  Sender: FDA-Public Use
  Company Number: US-ABBOTT-12P-163-0963399-00

PATIENT
  Sex: Female
  Weight: 80.812 kg

DRUGS (7)
  1. HUMIRA [Suspect]
     Dates: start: 20120723
  2. MORPHINE [Concomitant]
     Indication: PAIN
  3. ACETAMINOPHEN [Concomitant]
     Indication: PAIN
  4. NIACIN [Concomitant]
     Indication: PRODUCT USED FOR UNKNOWN INDICATION
     Dosage: 500MG DAILY
  5. INDOMETHACIN [Concomitant]
     Indication: PRODUCT USED FOR UNKNOWN INDICATION
  6. HUMIRA [Suspect]
     Indication: ANKYLOSING SPONDYLITIS
     Dates: start: 20080101, end: 20100101
  7. LISINOPRIL [Concomitant]
     Indication: HYPERTENSION
     Dosage: 20MG DAILY

REACTIONS (5)
  - UPPER LIMB FRACTURE [None]
  - SHOULDER OPERATION [None]
  - FALL [None]
  - ARTHRALGIA [None]
  - EXOSTOSIS [None]
